FAERS Safety Report 5808455-2 (Version None)
Quarter: 2008Q3

REPORT INFORMATION
  Report Type: 
  Country: None (occurrence: None)
  Receive Date: 20080711
  Receipt Date: 20080711
  Transmission Date: 20090109
  Serious: No
  Sender: FDA-Public Use
  Company Number: None

PATIENT
  Sex: Female

DRUGS (2)
  1. PROPYL-THIOURACIL [Suspect]
     Indication: HYPERTHYROIDISM
     Dosage: 250MG BID PO
     Route: 048
  2. PURINETHOL [Suspect]

REACTIONS (6)
  - ASTHENIA [None]
  - EATING DISORDER [None]
  - EPISTAXIS [None]
  - INSOMNIA [None]
  - MEDICATION ERROR [None]
  - PALPITATIONS [None]
